FAERS Safety Report 5099691-4 (Version None)
Quarter: 2006Q3

REPORT INFORMATION
  Report Type: 
  Country: None (occurrence: None)
  Receive Date: 20060908
  Receipt Date: 20060905
  Transmission Date: 20061208
  Serious: Yes (Other)
  Sender: FDA-Public Use
  Company Number: SE-AVENTIS-200619184GDDC

PATIENT
  Sex: Female

DRUGS (1)
  1. FLAGYL ^AVENTIS^ [Suspect]
     Indication: INFECTION

REACTIONS (2)
  - HEPATOCELLULAR DAMAGE [None]
  - JAUNDICE [None]
